FAERS Safety Report 11605268 (Version 1)
Quarter: 2015Q3

REPORT INFORMATION
  Report Type: Spontaneous
  Country: US (occurrence: US)
  Receive Date: 20150916
  Receipt Date: 20150916
  Transmission Date: 20151125
  Serious: No
  Sender: FDA-Public Use
  Company Number: US-ELI_LILLY_AND_COMPANY-US201404000367

PATIENT
  Sex: Female

DRUGS (5)
  1. HUMALOG [Suspect]
     Active Substance: INSULIN LISPRO
     Indication: DIABETES MELLITUS
     Dosage: UNK, TID
     Route: 065
     Dates: start: 201310
  2. VITAMIN D [Concomitant]
     Active Substance: CHOLECALCIFEROL
  3. LANTUS [Concomitant]
     Active Substance: INSULIN GLARGINE
     Dosage: 13 U, EACH EVENING
     Route: 065
  4. CALCIUM [Concomitant]
     Active Substance: CALCIUM
  5. HUMALOG [Suspect]
     Active Substance: INSULIN LISPRO
     Dosage: UNK, TID
     Route: 065
     Dates: start: 201310

REACTIONS (1)
  - Fall [Unknown]
